FAERS Safety Report 6643240-3 (Version None)
Quarter: 2010Q1

REPORT INFORMATION
  Report Type: 
  Country: None (occurrence: None)
  Receive Date: 20100316
  Receipt Date: 20100310
  Transmission Date: 20100710
  Serious: Yes (Hospitalization, Disabling)
  Sender: FDA-Public Use
  Company Number: 2010-0254

PATIENT
  Age: 46 Year
  Sex: Female

DRUGS (2)
  1. DYSPORT [Suspect]
     Indication: DYSTONIA
     Dosage: 1000 UNITS (1000 UNITS, SINGLE CYCLE), INTRAMUSCULAR
     Route: 030
     Dates: start: 20091217, end: 20091217
  2. DYSPORT [Suspect]
     Indication: FOOT DEFORMITY
     Dosage: 1000 UNITS (1000 UNITS, SINGLE CYCLE), INTRAMUSCULAR
     Route: 030
     Dates: start: 20091217, end: 20091217

REACTIONS (3)
  - BOTULISM [None]
  - IATROGENIC INJURY [None]
  - OFF LABEL USE [None]
